FAERS Safety Report 5370571-X (Version None)
Quarter: 2007Q2

REPORT INFORMATION
  Report Type: 
  Country: None (occurrence: None)
  Receive Date: 20070626
  Receipt Date: 20070614
  Transmission Date: 20071010
  Serious: Yes (Hospitalization)
  Sender: FDA-Public Use
  Company Number: JP-ELI_LILLY_AND_COMPANY-JP200706003657

PATIENT
  Age: 65 Year
  Sex: Female
  Weight: 54 kg

DRUGS (9)
  1. EVISTA [Suspect]
     Indication: OSTEOPOROSIS
     Dosage: 60 MG, DAILY (1/D)
     Route: 048
     Dates: start: 20070606, end: 20070611
  2. PURSENNID [Concomitant]
     Dosage: 24 MG, EACH EVENING
     Route: 048
     Dates: start: 20000101
  3. SOLANAX [Concomitant]
     Dosage: 0.4 MG, 2/D
     Route: 048
     Dates: start: 20000101
  4. BUFFERIN [Concomitant]
     Indication: MYOCARDIAL INFARCTION
     Dosage: 81 MG, EACH MORNING
     Route: 048
     Dates: start: 20000101
  5. DILTIAZEM HCL [Concomitant]
     Indication: MYOCARDIAL INFARCTION
     Dosage: 100 MG, 2/D
     Route: 048
     Dates: start: 20000101
  6. LIPITOR [Concomitant]
     Dosage: 10 MG, EACH EVENING
     Route: 048
     Dates: start: 20000101
  7. ONEALFA [Concomitant]
     Indication: OSTEOPOROSIS
     Dosage: 1 UG, EACH MORNING
     Route: 048
     Dates: start: 20070606, end: 20070611
  8. CARNACULIN [Concomitant]
     Indication: RETINAL VEIN OCCLUSION
     Dosage: 150 IU, DAILY (1/D)
     Route: 048
     Dates: start: 20051108
  9. ADONA [Concomitant]
     Indication: RETINAL VEIN OCCLUSION
     Dosage: 90 MG, DAILY (1/D)
     Route: 048
     Dates: start: 20051108

REACTIONS (1)
  - ARRHYTHMIA [None]
